FAERS Safety Report 23908159 (Version 1)
Quarter: 2024Q2

REPORT INFORMATION
  Report Type: Spontaneous
  Country: BR (occurrence: None)
  Receive Date: 20240528
  Receipt Date: 20240528
  Transmission Date: 20240716
  Serious: Yes (Other)
  Sender: FDA-Public Use
  Company Number: 2024A120939

PATIENT
  Age: 71 Year
  Sex: Male

DRUGS (1)
  1. LYNPARZA [Suspect]
     Active Substance: OLAPARIB
     Indication: Prostate cancer stage I
     Route: 048

REACTIONS (3)
  - Malignant neoplasm progression [Unknown]
  - Liver injury [Unknown]
  - Anaemia [Recovered/Resolved]
